FAERS Safety Report 8251547-1 (Version None)
Quarter: 2012Q1

REPORT INFORMATION
  Report Type: 
  Country: None (occurrence: None)
  Receive Date: 20120321
  Receipt Date: 20110729
  Transmission Date: 20120608
  Serious: Yes (Other)
  Sender: FDA-Public Use
  Company Number: PHHY2011US68663

PATIENT
  Age: 63 Year
  Sex: Female
  Weight: 103.4 kg

DRUGS (2)
  1. SULFUR (SULFUR) [Concomitant]
  2. TEKTAMLO (ALISKIREN, AMLODIPINE) TABLET [Suspect]
     Indication: HYPERTENSION
     Dosage: 150 MG ALIS AND 5 AMLO, QD, ORAL
     Route: 048
     Dates: start: 20110722, end: 20110725

REACTIONS (1)
  - ANGIOEDEMA [None]
